FAERS Safety Report 5828544-6 (Version None)
Quarter: 2008Q3

REPORT INFORMATION
  Report Type: 
  Country: None (occurrence: None)
  Receive Date: 20080729
  Receipt Date: 20080729
  Transmission Date: 20090109
  Serious: Yes (Life-Threatening, Other)
  Sender: FDA-Public Use
  Company Number: None

PATIENT
  Age: 59 Year
  Sex: Male
  Weight: 92.9874 kg

DRUGS (8)
  1. ACTOS [Suspect]
     Indication: DIABETES MELLITUS
     Dosage: 45 MG 1XDAILY PO
     Route: 048
     Dates: start: 20060915, end: 20080729
  2. TORSEMIDE [Concomitant]
  3. POTASSIUM CHLORIDE [Concomitant]
  4. GLUMETZA [Concomitant]
  5. JANUVIA [Concomitant]
  6. EXFORGE [Concomitant]
  7. COREG CR [Concomitant]
  8. VYTORIN [Concomitant]

REACTIONS (7)
  - CHEST PAIN [None]
  - DIZZINESS [None]
  - DRUG INTERACTION [None]
  - LOSS OF CONSCIOUSNESS [None]
  - NEPHROLITHIASIS [None]
  - PALPITATIONS [None]
  - SYNCOPE [None]
